FAERS Safety Report 19716406 (Version 1)
Quarter: 2021Q3

REPORT INFORMATION
  Report Type: Spontaneous
  Country: GB (occurrence: GB)
  Receive Date: 20210818
  Receipt Date: 20210818
  Transmission Date: 20211014
  Serious: Yes (Other)
  Sender: FDA-Public Use
  Company Number: GB-SUN PHARMACEUTICAL INDUSTRIES LTD-2021R1-307948

PATIENT
  Age: 34 Year
  Sex: Female

DRUGS (2)
  1. CO?AMOXICLAV [Suspect]
     Active Substance: AMOXICILLIN\CLAVULANATE POTASSIUM
     Indication: COVID-19
     Dosage: UNK
     Route: 065
  2. HYDROCORTISONE. [Suspect]
     Active Substance: HYDROCORTISONE
     Indication: COVID-19
     Dosage: UNK
     Route: 065

REACTIONS (3)
  - Condition aggravated [Unknown]
  - Exposure during pregnancy [Unknown]
  - Premature delivery [Unknown]
